FAERS Safety Report 4992202-0 (Version None)
Quarter: 2006Q2

REPORT INFORMATION
  Report Type: 
  Country: None (occurrence: None)
  Receive Date: 20060502
  Receipt Date: 20060420
  Transmission Date: 20061013
  Serious: Yes (Hospitalization)
  Sender: FDA-Public Use
  Company Number: 310009M05FRA

PATIENT
  Age: 38 Year
  Sex: Female
  Weight: 64 kg

DRUGS (1)
  1. GONAL-F [Suspect]
     Indication: OVULATION INDUCTION
     Dosage: SUBCUTANEOUS
     Route: 058
     Dates: start: 20050707, end: 20050710

REACTIONS (2)
  - ANGIONEUROTIC OEDEMA [None]
  - BRONCHOSPASM [None]
